FAERS Safety Report 6802118-2 (Version None)
Quarter: 2010Q2

REPORT INFORMATION
  Report Type: 
  Country: None (occurrence: None)
  Receive Date: 20100629
  Receipt Date: 20080225
  Transmission Date: 20101027
  Serious: Yes (Hospitalization, Other)
  Sender: FDA-Public Use
  Company Number: US-PFIZER INC-2007026394

PATIENT
  Sex: Male
  Weight: 72.6 kg

DRUGS (2)
  1. BEXTRA [Suspect]
     Indication: LOWER LIMB FRACTURE
     Route: 048
     Dates: start: 20031101, end: 20040401
  2. BEXTRA [Suspect]
     Indication: FOOT FRACTURE

REACTIONS (3)
  - DEPRESSION [None]
  - HYPERTENSION [None]
  - MYOCARDIAL INFARCTION [None]
